FAERS Safety Report 6278502-5 (Version None)
Quarter: 2009Q3

REPORT INFORMATION
  Report Type: 
  Country: None (occurrence: None)
  Receive Date: 20090721
  Receipt Date: 20090709
  Transmission Date: 20100115
  Serious: Yes (Hospitalization)
  Sender: FDA-Public Use
  Company Number: 2009008322

PATIENT
  Sex: Male

DRUGS (1)
  1. ACTIQ [Suspect]
     Indication: MULTIPLE MYELOMA
     Dosage: (400 MCG, 2 LOZENGES), BU; (400 MCG, 3 LOZENGES), BU; (400 MCG, 4 BU
     Route: 002

REACTIONS (2)
  - DRUG INEFFECTIVE [None]
  - MULTIPLE MYELOMA [None]
